FAERS Safety Report 6745744-1 (Version None)
Quarter: 2010Q2

REPORT INFORMATION
  Report Type: 
  Country: None (occurrence: None)
  Receive Date: 20100528
  Receipt Date: 20100517
  Transmission Date: 20101027
  Serious: Yes (Other)
  Sender: FDA-Public Use
  Company Number: PHHY2010MX19108

PATIENT
  Age: 84 Year
  Sex: Female

DRUGS (1)
  1. ACLASTA [Suspect]
     Indication: OSTEOPOROSIS
     Dosage: 1 AMPOULE (5 MG/100) PER YEAR
     Route: 042
     Dates: start: 20090330

REACTIONS (4)
  - ARTHRALGIA [None]
  - ARTHRITIS [None]
  - DYSSTASIA [None]
  - SPINAL DEFORMITY [None]
